FAERS Safety Report 4704645-0 (Version None)
Quarter: 2005Q2

REPORT INFORMATION
  Report Type: 
  Country: None (occurrence: None)
  Receive Date: 20050630
  Receipt Date: 20050627
  Transmission Date: 20051028
  Serious: Yes (Hospitalization)
  Sender: FDA-Public Use
  Company Number: FR-MERCK-0506FRA00111

PATIENT
  Age: 70 Year
  Sex: Female

DRUGS (3)
  1. ZETIA [Suspect]
     Indication: HYPERCHOLESTEROLAEMIA
     Route: 048
     Dates: start: 20050311, end: 20050321
  2. BENAZEPRIL HYDROCHLORIDE [Concomitant]
     Indication: HYPERTENSION
     Route: 048
     Dates: start: 20000101
  3. NOROXIN [Concomitant]
     Indication: BLADDER PAIN
     Route: 048
     Dates: start: 20000101

REACTIONS (1)
  - COLITIS ISCHAEMIC [None]
